FAERS Safety Report 10276013 (Version 1)
Quarter: 2014Q3

REPORT INFORMATION
  Report Type: Spontaneous
  Country: US (occurrence: US)
  Receive Date: 20140703
  Receipt Date: 20140703
  Transmission Date: 20150326
  Serious: No
  Sender: FDA-Public Use
  Company Number: US-B.I. PHARMACEUTICALS,INC./RIDGEFIELD-2014-BI-29435BP

PATIENT
  Age: 74 Year
  Sex: Male
  Weight: 155 kg

DRUGS (27)
  1. WARFARIN [Concomitant]
     Active Substance: WARFARIN
     Indication: CARDIAC DISORDER
     Dosage: 8.5 MG
     Route: 048
     Dates: start: 2009
  2. SERTALINE [Concomitant]
     Indication: ANXIETY
     Dosage: 25 MG
     Route: 048
     Dates: start: 2012
  3. BUFFERED APIRIN [Concomitant]
     Dosage: 325 MG
     Route: 048
  4. FUROSEMIDE. [Concomitant]
     Active Substance: FUROSEMIDE
     Indication: OEDEMA
     Dosage: 160 MG
     Route: 048
     Dates: start: 2008
  5. OMEPRAZOLE. [Concomitant]
     Active Substance: OMEPRAZOLE
     Indication: PROPHYLAXIS
     Dosage: 20 MG
     Route: 048
     Dates: start: 2008
  6. VITAMIN C [Concomitant]
     Active Substance: ASCORBIC ACID
     Dosage: 1 ANZ
     Route: 048
  7. VITAMIN E [Concomitant]
     Active Substance: .ALPHA.-TOCOPHEROL
     Dosage: 1 ANZ
     Route: 048
  8. SALINE NASAL SPRAY [Concomitant]
     Active Substance: SODIUM CHLORIDE
     Indication: NASAL CONGESTION
     Dosage: FORMULATION: NASAL SPRAY; STRENGTH: 2 SPRAYS; DAILY DOSE: 8 SPRAYS
     Route: 045
  9. HYDROCODONE ACETAMINOPHEN [Concomitant]
     Active Substance: ACETAMINOPHEN\HYDROCODONE BITARTRATE
     Indication: BACK PAIN
     Dosage: STRENGTH: 10 MG/ 325 MG; DAILY DOSE: 10 MG/ 325 MG
     Route: 048
     Dates: start: 1990
  10. VITAMIN D3 [Concomitant]
     Active Substance: CHOLECALCIFEROL
     Dosage: 1 ANZ
     Route: 048
  11. GLUCOSAMINE SULFATE [Concomitant]
     Active Substance: GLUCOSAMINE SULFATE
     Dosage: 750 MG
     Route: 048
  12. COMBIVENT [Suspect]
     Active Substance: ALBUTEROL SULFATE\IPRATROPIUM BROMIDE
     Indication: EMPHYSEMA
     Dosage: STRENGTH: 20 MCG / 100 MCG; DAILY DOSE: 60 MCG /
     Route: 055
     Dates: start: 201401
  13. GLIPIZIDE. [Concomitant]
     Active Substance: GLIPIZIDE
     Indication: TYPE 2 DIABETES MELLITUS
     Dosage: 20 MG
     Route: 048
     Dates: start: 1997
  14. KETOCONOZOLE CREAM 2% [Concomitant]
     Indication: FUNGAL SKIN INFECTION
     Route: 061
  15. FERROUS SULFATE [Concomitant]
     Active Substance: FERROUS SULFATE\FERROUS SULFATE, DRIED
     Indication: BLOOD IRON DECREASED
     Dosage: 60 MG
     Route: 048
     Dates: start: 2010
  16. POYETHYLENE GLYCOL [Concomitant]
     Indication: CONSTIPATION
     Dosage: FORMULATION: ORAL SUSPENSION; STRENGTH: 6 OZ; DAILY DOSE: 6 OZ
     Route: 048
     Dates: start: 2012
  17. VITAMIN B12 [Concomitant]
     Active Substance: CYANOCOBALAMIN
     Dosage: 1 ANZ
     Route: 048
  18. METOPROLOL [Concomitant]
     Active Substance: METOPROLOL
     Indication: CARDIAC FLUTTER
     Dosage: 25 MG
     Route: 048
     Dates: start: 2009
  19. HYDROCHLOROTHIAZIDE. [Concomitant]
     Active Substance: HYDROCHLOROTHIAZIDE
     Indication: OEDEMA
     Dosage: 25 MG
     Route: 048
     Dates: start: 2008
  20. SPIRONOLACTONE. [Concomitant]
     Active Substance: SPIRONOLACTONE
     Indication: OEDEMA
     Dosage: 12.5 MG
     Route: 048
     Dates: start: 2008
  21. OMEGA 3 [Concomitant]
     Active Substance: OMEGA-3 FATTY ACIDS
     Dosage: 1 ANZ
     Route: 048
  22. LANTUS INSULIN [Concomitant]
     Indication: TYPE 2 DIABETES MELLITUS
     Dosage: 50 ANZ
     Route: 058
     Dates: start: 2003
  23. KLOR-CON [Concomitant]
     Active Substance: POTASSIUM CHLORIDE
     Indication: MINERAL SUPPLEMENTATION
     Dosage: 20 MEQ
     Route: 048
     Dates: start: 2008
  24. HYDROCODONE ACETAMINOPHEN [Concomitant]
     Active Substance: ACETAMINOPHEN\HYDROCODONE BITARTRATE
     Indication: PAIN
  25. MULTIVITAMINS [Concomitant]
     Active Substance: VITAMINS
     Dosage: 1 ANZ
     Route: 048
  26. CHROMIUM PICOLINATE [Concomitant]
     Active Substance: CHROMIUM PICOLINATE
     Indication: TYPE 2 DIABETES MELLITUS
     Dosage: 800 MCG
     Route: 048
     Dates: start: 2001
  27. LIOTHYRONINE [Concomitant]
     Active Substance: LIOTHYRONINE
     Indication: HYPOTHYROIDISM
     Dosage: 5 MG
     Route: 048
     Dates: start: 2007

REACTIONS (1)
  - Drug ineffective [Not Recovered/Not Resolved]

NARRATIVE: CASE EVENT DATE: 201401
